FAERS Safety Report 8283306-8 (Version None)
Quarter: 2012Q2

REPORT INFORMATION
  Report Type: 
  Country: None (occurrence: None)
  Receive Date: 20120413
  Receipt Date: 20120409
  Transmission Date: 20120825
  Serious: Yes (Death, Other)
  Sender: FDA-Public Use
  Company Number: US-ELI_LILLY_AND_COMPANY-US201204003366

PATIENT

DRUGS (2)
  1. DEXAMETHASONE [Concomitant]
     Indication: PROPHYLAXIS OF NAUSEA AND VOMITING
     Dosage: UNK, ON D1,4,8,11,15,18 Q28 DAYS
  2. GEMZAR [Suspect]
     Indication: OESOPHAGEAL CARCINOMA
     Dosage: 1000 MG/M2, ON D1, D8 + D15, Q28DAYS
     Route: 042

REACTIONS (3)
  - FALL [None]
  - DEATH [None]
  - NEOPLASM PROGRESSION [None]
